FAERS Safety Report 7384016-1 (Version None)
Quarter: 2011Q1

REPORT INFORMATION
  Report Type: 
  Country: None (occurrence: None)
  Receive Date: 20110330
  Receipt Date: 20110322
  Transmission Date: 20110831
  Serious: Yes (Hospitalization, Other)
  Sender: FDA-Public Use
  Company Number: FR-NAPPMUNDI-GBR-2011-0007962

PATIENT
  Sex: Male

DRUGS (12)
  1. OXYCONTIN [Suspect]
     Indication: PRODUCT USED FOR UNKNOWN INDICATION
     Dosage: 1 DF, BID
     Route: 048
     Dates: start: 20110211, end: 20110218
  2. OXYNORM [Suspect]
     Indication: PRODUCT USED FOR UNKNOWN INDICATION
     Dosage: UNK
     Route: 048
     Dates: start: 20110211, end: 20110218
  3. TARKA [Concomitant]
     Dosage: 1 DF, DAILY
  4. ZANIDIP [Concomitant]
     Dosage: 10 MG, UNK
  5. FLUDEX LP [Concomitant]
     Dosage: 1.5 MG, DAILY
  6. ALIMTA [Concomitant]
     Indication: CHEMOTHERAPY
     Dosage: UNK
     Dates: start: 20110211
  7. CISPLATIN [Concomitant]
     Indication: CHEMOTHERAPY
     Dosage: UNK
     Dates: start: 20110211
  8. PLAVIX [Concomitant]
     Dosage: 75 MG, UNK
  9. KARDEGIC [Concomitant]
     Dosage: 160 MG, DAILY
  10. SECTRAL [Concomitant]
     Dosage: 400 MG, DAILY
  11. ZYLORIC [Concomitant]
     Dosage: 200 MG, DAILY
  12. TAHOR [Concomitant]
     Dosage: 10 MG, UNK

REACTIONS (9)
  - MIOSIS [None]
  - ASTHENIA [None]
  - HYPOXIA [None]
  - SOMNOLENCE [None]
  - RENAL FAILURE [None]
  - CLONUS [None]
  - DISTURBANCE IN ATTENTION [None]
  - DECREASED APPETITE [None]
  - TONSILLITIS [None]
